FAERS Safety Report 16931233 (Version 1)
Quarter: 2019Q4

REPORT INFORMATION
  Report Type: Spontaneous
  Country: US (occurrence: US)
  Receive Date: 20191017
  Receipt Date: 20191017
  Transmission Date: 20200122
  Serious: Yes (Death, Hospitalization)
  Sender: FDA-Public Use
  Company Number: US-BAUSCH-BL-2019-057689

PATIENT
  Age: 28 Year
  Sex: Male

DRUGS (2)
  1. BUPROPION. [Suspect]
     Active Substance: BUPROPION
     Indication: SUICIDE ATTEMPT
     Dosage: CONSUMPTION OF 30 300MG BUPROPION EXTENDED RELEASE PILLS
     Route: 048
  2. DEPAKOTE [Suspect]
     Active Substance: DIVALPROEX SODIUM
     Indication: SUICIDE ATTEMPT
     Dosage: OVERDOSE
     Route: 048

REACTIONS (4)
  - Completed suicide [Fatal]
  - Cardiotoxicity [Fatal]
  - Intentional overdose [Unknown]
  - Neurotoxicity [Fatal]
